FAERS Safety Report 13685474 (Version 4)
Quarter: 2017Q3

REPORT INFORMATION
  Report Type: Report from Study
  Country: US (occurrence: US)
  Receive Date: 20170623
  Receipt Date: 20170724
  Transmission Date: 20171127
  Serious: Yes (Other)
  Sender: FDA-Public Use
  Company Number: US-BIOGEN-2017BI00417290

PATIENT
  Age: 61 Year
  Sex: Female

DRUGS (3)
  1. TYSABRI [Suspect]
     Active Substance: NATALIZUMAB
     Route: 042
     Dates: start: 20130717, end: 20131203
  2. TYSABRI [Suspect]
     Active Substance: NATALIZUMAB
     Indication: MULTIPLE SCLEROSIS
     Route: 042
     Dates: start: 200808, end: 20130405
  3. TYSABRI [Suspect]
     Active Substance: NATALIZUMAB
     Route: 042
     Dates: start: 20140321, end: 20170515

REACTIONS (1)
  - Progressive multifocal leukoencephalopathy [Not Recovered/Not Resolved]

NARRATIVE: CASE EVENT DATE: 20170602
